FAERS Safety Report 13843910 (Version 2)
Quarter: 2017Q4

REPORT INFORMATION
  Report Type: Spontaneous
  Country: JP (occurrence: JP)
  Receive Date: 20170808
  Receipt Date: 20171002
  Transmission Date: 20180320
  Serious: Yes (Death, Other)
  Sender: FDA-Public Use
  Company Number: JP-009507513-1707JPN002507J

PATIENT
  Age: 72 Year
  Sex: Male
  Weight: 48 kg

DRUGS (1)
  1. KEYTRUDA [Suspect]
     Active Substance: PEMBROLIZUMAB
     Indication: NON-SMALL CELL LUNG CANCER
     Dosage: 200 MG, Q3W
     Route: 041
     Dates: start: 20170726, end: 20170726

REACTIONS (6)
  - Interstitial lung disease [Fatal]
  - Hypercalcaemia [Unknown]
  - Cognitive disorder [Unknown]
  - Lymphangiosis carcinomatosa [Fatal]
  - Acute respiratory distress syndrome [Fatal]
  - Pneumonia bacterial [Fatal]

NARRATIVE: CASE EVENT DATE: 20170726
